FAERS Safety Report 7769564-4 (Version None)
Quarter: 2011Q3

REPORT INFORMATION
  Report Type: 
  Country: None (occurrence: None)
  Receive Date: 20110922
  Receipt Date: 20110413
  Transmission Date: 20111222
  Serious: No
  Sender: FDA-Public Use
  Company Number: US-ASTRAZENECA-2009UW12957

PATIENT
  Age: 15490 Day
  Sex: Male
  Weight: 111.1 kg

DRUGS (12)
  1. SEROQUEL [Suspect]
     Indication: SCHIZOPHRENIA
     Route: 048
     Dates: start: 20050101
  2. SEROQUEL [Suspect]
     Route: 048
     Dates: start: 20050601
  3. ABILIFY [Concomitant]
     Dates: start: 20060101
  4. ZYPREXA [Concomitant]
     Dates: start: 20050617
  5. SEROQUEL [Suspect]
     Indication: DEPRESSION
     Route: 048
     Dates: start: 20050101
  6. PAXIL [Concomitant]
     Dates: start: 20050617
  7. SEROQUEL [Suspect]
     Route: 048
     Dates: start: 20050601
  8. CLONIDINE [Concomitant]
     Dates: start: 20050617
  9. PRINIVIL [Concomitant]
     Dosage: 5
     Dates: start: 20050617
  10. COREG [Concomitant]
     Dates: start: 20050617
  11. SEROQUEL [Suspect]
     Indication: BIPOLAR DISORDER
     Route: 048
     Dates: start: 20050101
  12. SEROQUEL [Suspect]
     Route: 048
     Dates: start: 20050601

REACTIONS (4)
  - OBESITY [None]
  - TYPE 2 DIABETES MELLITUS [None]
  - BLOOD CHOLESTEROL INCREASED [None]
  - HYPERLIPIDAEMIA [None]
